FAERS Safety Report 5286960-8 (Version None)
Quarter: 2007Q2

REPORT INFORMATION
  Report Type: 
  Country: None (occurrence: None)
  Receive Date: 20070404
  Receipt Date: 20070327
  Transmission Date: 20071010
  Serious: Yes (Hospitalization, Other)
  Sender: FDA-Public Use
  Company Number: SI-ABBOTT-07P-261-0363159-00

PATIENT
  Age: 23 Year
  Sex: Female

DRUGS (2)
  1. VALPROIC ACID [Suspect]
     Indication: CONVULSION PROPHYLAXIS
     Route: 048
  2. VALPROIC ACID [Suspect]
     Route: 048

REACTIONS (3)
  - HYPERAMMONAEMIA [None]
  - OVERDOSE [None]
  - SUICIDE ATTEMPT [None]
